FAERS Safety Report 10843481 (Version 1)
Quarter: 2015Q1

REPORT INFORMATION
  Report Type: Report from Study
  Country: US (occurrence: US)
  Receive Date: 20150220
  Receipt Date: 20150220
  Transmission Date: 20150721
  Serious: No
  Sender: FDA-Public Use
  Company Number: US-ABBVIE-14P-163-1258430-00

PATIENT
  Sex: Male

DRUGS (1)
  1. HUMIRA [Suspect]
     Active Substance: ADALIMUMAB
     Indication: MATERNAL EXPOSURE TIMING UNSPECIFIED
     Route: 064

REACTIONS (10)
  - Intertrigo [Recovering/Resolving]
  - Skin infection [Recovered/Resolved]
  - Rash papular [Unknown]
  - Infection [Unknown]
  - Seborrhoeic dermatitis [Recovering/Resolving]
  - Staphylococcal infection [Unknown]
  - Staphylococcal infection [Recovered/Resolved]
  - Fungal infection [Recovering/Resolving]
  - Foetal exposure during pregnancy [Unknown]
  - Gastrooesophageal reflux disease [Not Recovered/Not Resolved]

NARRATIVE: CASE EVENT DATE: 201405
